FAERS Safety Report 4930875-9 (Version None)
Quarter: 2006Q1

REPORT INFORMATION
  Report Type: 
  Country: None (occurrence: None)
  Receive Date: 20060227
  Receipt Date: 20060216
  Transmission Date: 20060701
  Serious: Yes (Life-Threatening, Hospitalization)
  Sender: FDA-Public Use
  Company Number: 200610332GDS

PATIENT
  Age: 69 Year
  Sex: Female
  Weight: 47 kg

DRUGS (6)
  1. ASPIRIN [Suspect]
     Indication: MYOCARDIAL INFARCTION
     Dosage: 100 MG, TOTAL DAILY, ORAL
     Route: 048
     Dates: start: 20050414, end: 20050425
  2. TICLOPIDINE HCL [Suspect]
     Indication: MYOCARDIAL INFARCTION
     Dosage: 100 MG, ORAL
     Route: 048
     Dates: start: 20050414, end: 20050425
  3. SIGMART [Concomitant]
  4. SELBEX [Concomitant]
  5. TAGAMET [Concomitant]
  6. PLETAL [Concomitant]

REACTIONS (9)
  - BLOOD PRESSURE INCREASED [None]
  - CEREBRAL HAEMORRHAGE [None]
  - DECEREBRATION [None]
  - DEPRESSED LEVEL OF CONSCIOUSNESS [None]
  - GAZE PALSY [None]
  - HEMIPARESIS [None]
  - MOVEMENT DISORDER [None]
  - NERVOUS SYSTEM DISORDER [None]
  - URINARY INCONTINENCE [None]
